FAERS Safety Report 10867270 (Version 2)
Quarter: 2015Q1

REPORT INFORMATION
  Report Type: Report from Study
  Country: JP (occurrence: JP)
  Receive Date: 20150225
  Receipt Date: 20150227
  Transmission Date: 20150721
  Serious: Yes (Death)
  Sender: FDA-Public Use
  Company Number: JP-PFIZER INC-2015068571

PATIENT
  Age: 76 Year
  Sex: Male
  Weight: 57 kg

DRUGS (12)
  1. XALKORI [Suspect]
     Active Substance: CRIZOTINIB
     Dosage: 250 MG, 1X/DAY
     Dates: start: 20131104, end: 20131104
  2. XALKORI [Suspect]
     Active Substance: CRIZOTINIB
     Dosage: 250 MG, 1X/DAY
     Dates: start: 20131028, end: 20131028
  3. XALKORI [Suspect]
     Active Substance: CRIZOTINIB
     Dosage: 250 MG, 2X/DAY
     Dates: start: 20131029, end: 20131103
  4. XALKORI [Suspect]
     Active Substance: CRIZOTINIB
     Dosage: 250 MG, 2X/DAY
     Dates: start: 20131119, end: 20140329
  5. HUSCODE [Concomitant]
     Active Substance: CHLORPHENIRAMINE MALEAT\DIHYDROCODEINE PHOSPHATE\METHYLEPHEDRINE HYDROCHLORIDE, DL-
     Dosage: UNK UNK, 3X/DAY
     Route: 048
     Dates: start: 20131008, end: 20131023
  6. XALKORI [Suspect]
     Active Substance: CRIZOTINIB
     Indication: NON-SMALL CELL LUNG CANCER
     Dosage: 250 MG, 2X/DAY
     Route: 048
     Dates: start: 20131017, end: 20131023
  7. NU LOTAN [Concomitant]
     Active Substance: LOSARTAN
     Dosage: 50 MG, 1X/DAY
     Route: 048
     Dates: start: 20110719, end: 20131104
  8. CONIEL [Concomitant]
     Active Substance: BENIDIPINE HYDROCHLORIDE
     Dosage: 4 MG, 1X/DAY
     Route: 048
     Dates: start: 20110719, end: 20131104
  9. CARDENALIN [Concomitant]
     Active Substance: DOXAZOSIN MESYLATE
     Dosage: 2 MG, 1X/DAY
     Route: 048
     Dates: start: 20110719, end: 20131112
  10. TERPERAN [Concomitant]
     Active Substance: METOCLOPRAMIDE HYDROCHLORIDE
     Dosage: 5 MG, 3X/DAY
     Route: 048
     Dates: start: 20131017, end: 20131023
  11. INDERAL [Concomitant]
     Active Substance: PROPRANOLOL HYDROCHLORIDE
     Dosage: 10 MG, 1X/DAY
     Route: 048
     Dates: start: 20110719, end: 20131112
  12. CODEINE PHOSPHATE [Concomitant]
     Active Substance: CODEINE PHOSPHATE
     Dosage: 2 G, 1X/DAY
     Route: 048
     Dates: start: 20131016, end: 20131024

REACTIONS (1)
  - Pneumonia [Fatal]

NARRATIVE: CASE EVENT DATE: 20131023
